FAERS Safety Report 6793066-5 (Version None)
Quarter: 2010Q2

REPORT INFORMATION
  Report Type: 
  Country: None (occurrence: None)
  Receive Date: 20100624
  Receipt Date: 20081223
  Transmission Date: 20101027
  Serious: Yes (Other)
  Sender: FDA-Public Use
  Company Number: US-PFIZER INC-2008093440

PATIENT
  Age: 72 Year
  Sex: Male
  Weight: 88.435 kg

DRUGS (19)
  1. ERAXIS [Suspect]
     Indication: OESOPHAGEAL CANDIDIASIS
     Dosage: 100 MG, 1X/DAY
     Route: 042
     Dates: start: 20081031
  2. ERAXIS [Suspect]
     Dosage: 50 MG, 1X/DAY
     Dates: end: 20081102
  3. HYDRALAZINE [Concomitant]
     Indication: HYPERTENSION
     Dosage: UNK
     Route: 042
  4. LABETALOL [Concomitant]
     Indication: HYPERTENSION
     Dosage: UNK
     Route: 042
  5. TYLENOL [Concomitant]
     Indication: PAIN
     Dosage: UNK
     Route: 048
  6. TYLENOL [Concomitant]
     Indication: PYREXIA
     Dosage: 500 MG, 4X/DAY
     Route: 048
     Dates: start: 20081101, end: 20081101
  7. MORPHINE HYDROCHLORIDE [Concomitant]
     Indication: PAIN
     Dosage: UNK
     Route: 042
  8. LACTULOSE [Concomitant]
     Dosage: 30 MG, 1X/DAY
     Route: 048
     Dates: start: 20081015, end: 20081101
  9. RENAGEL [Concomitant]
     Dosage: 800 MG, 3X/DAY
     Route: 048
     Dates: start: 20081017, end: 20081103
  10. ZEMPLAR [Concomitant]
     Dosage: 3 UG, UNK
     Route: 042
     Dates: start: 20081023, end: 20081113
  11. CELLCEPT [Concomitant]
     Dosage: 750 MG, 1X/DAY
     Route: 042
     Dates: start: 20081026, end: 20081101
  12. CELLCEPT [Concomitant]
     Dosage: UNK
     Route: 048
     Dates: start: 20081101, end: 20081103
  13. SOLU-MEDROL [Concomitant]
     Dosage: 20 MG, 2X/DAY
     Route: 042
     Dates: start: 20081026, end: 20081101
  14. AMIODARONE HYDROCHLORIDE [Concomitant]
     Dosage: 200 MG, 2X/DAY
     Route: 048
     Dates: start: 20081028, end: 20081103
  15. EPOGEN [Concomitant]
     Dosage: UNK
     Dates: start: 20081028, end: 20081113
  16. KEPPRA [Concomitant]
     Dosage: 500 MG, 2X/DAY
     Route: 048
     Dates: start: 20081029, end: 20081103
  17. LOPRESSOR [Concomitant]
     Dosage: 50 MG, 2X/DAY
     Route: 048
     Dates: start: 20081029, end: 20081103
  18. PREDNISONE [Concomitant]
     Dosage: 10 MG, 1X/DAY
     Route: 048
     Dates: start: 20081101, end: 20081103
  19. ZOFRAN [Concomitant]
     Indication: NAUSEA
     Dosage: UNK
     Route: 042

REACTIONS (1)
  - LEUKOPENIA [None]
